FAERS Safety Report 17493769 (Version 1)
Quarter: 2020Q1

REPORT INFORMATION
  Report Type: Spontaneous
  Country: GB (occurrence: GB)
  Receive Date: 20200304
  Receipt Date: 20200304
  Transmission Date: 20200409
  Serious: Yes (Hospitalization)
  Sender: FDA-Public Use
  Company Number: GB-ACCORD-174542

PATIENT
  Age: 83 Year

DRUGS (10)
  1. LEVOTHYROXINE. [Concomitant]
     Active Substance: LEVOTHYROXINE
  2. APIXABAN [Concomitant]
     Active Substance: APIXABAN
  3. FOLIC ACID. [Concomitant]
     Active Substance: FOLIC ACID
     Dosage: MORNING
  4. BISOPROLOL [Concomitant]
     Active Substance: BISOPROLOL
     Dosage: MORNING
  5. SPIRONOLACTONE. [Suspect]
     Active Substance: SPIRONOLACTONE
     Indication: PRODUCT USED FOR UNKNOWN INDICATION
     Dosage: MORNING
  6. CALCIUM CARBONATE. [Concomitant]
     Active Substance: CALCIUM CARBONATE
  7. LANSOPRAZOLE. [Concomitant]
     Active Substance: LANSOPRAZOLE
     Dosage: MORNING
  8. COLECALCIFEROL [Concomitant]
     Active Substance: CHOLECALCIFEROL
  9. LAMOTRIGINE. [Concomitant]
     Active Substance: LAMOTRIGINE
  10. SIMVASTATIN. [Concomitant]
     Active Substance: SIMVASTATIN
     Dosage: NIGHT

REACTIONS (2)
  - Seizure [Unknown]
  - Hyponatraemia [Recovering/Resolving]
